FAERS Safety Report 6998880-9 (Version None)
Quarter: 2010Q3

REPORT INFORMATION
  Report Type: 
  Country: None (occurrence: None)
  Receive Date: 20100920
  Receipt Date: 20090914
  Transmission Date: 20110219
  Serious: No
  Sender: FDA-Public Use
  Company Number: US-ASTRAZENECA-2009SE13705

PATIENT
  Age: 19847 Day
  Sex: Female
  Weight: 77.1 kg

DRUGS (5)
  1. SEROQUEL XR [Suspect]
     Indication: BIPOLAR DISORDER
     Route: 048
  2. SEROQUEL XR [Suspect]
     Indication: DEPRESSION
     Route: 048
  3. DEPAKOTE [Concomitant]
  4. CLONOPIN [Concomitant]
  5. PRISTIQ [Concomitant]

REACTIONS (1)
  - HALLUCINATIONS, MIXED [None]
